FAERS Safety Report 12419688 (Version 1)
Quarter: 2016Q2

REPORT INFORMATION
  Report Type: Spontaneous
  Country: UY (occurrence: UY)
  Receive Date: 20160531
  Receipt Date: 20160531
  Transmission Date: 20160815
  Serious: Yes (Hospitalization, Other)
  Sender: FDA-Public Use
  Company Number: UY-GLAXOSMITHKLINE-UY2016GSK072511

PATIENT
  Age: 46 Year
  Sex: Male

DRUGS (1)
  1. ZINNAT [Suspect]
     Active Substance: CEFUROXIME AXETIL
     Indication: PNEUMONIA
     Dosage: 500 MG, BID
     Route: 048
     Dates: start: 20160504, end: 20160512

REACTIONS (4)
  - Moraxella infection [Unknown]
  - Drug ineffective [Unknown]
  - Pyrexia [Recovered/Resolved]
  - Antimicrobial susceptibility test sensitive [Unknown]

NARRATIVE: CASE EVENT DATE: 20160514
